FAERS Safety Report 20321597 (Version 1)
Quarter: 2022Q1

REPORT INFORMATION
  Report Type: Spontaneous
  Country: US (occurrence: None)
  Receive Date: 20220110
  Receipt Date: 20220110
  Transmission Date: 20220423
  Serious: Yes (Other)
  Sender: FDA-Public Use
  Company Number: None

PATIENT
  Age: 51 Year
  Sex: Male
  Weight: 92.8 kg

DRUGS (1)
  1. PRIVIGEN [Suspect]
     Active Substance: HUMAN IMMUNOGLOBULIN G
     Indication: Blood immunoglobulin E decreased
     Dosage: OTHER FREQUENCY : IV INFUSION;?
     Route: 041
     Dates: start: 20211217, end: 20211217

REACTIONS (4)
  - Hypersensitivity [None]
  - Urticaria [None]
  - Pruritus [None]
  - Lip swelling [None]

NARRATIVE: CASE EVENT DATE: 20211217
